FAERS Safety Report 6045774-1 (Version None)
Quarter: 2009Q1

REPORT INFORMATION
  Report Type: 
  Country: None (occurrence: None)
  Receive Date: 20090121
  Receipt Date: 20090109
  Transmission Date: 20090719
  Serious: Yes (Hospitalization)
  Sender: FDA-Public Use
  Company Number: DE-ROCHE-607828

PATIENT
  Age: 70 Year
  Sex: Male
  Weight: 91.5 kg

DRUGS (15)
  1. TOREM [Suspect]
     Route: 048
  2. NEORECORMON [Suspect]
     Route: 058
  3. CARVEDILOL [Suspect]
     Route: 048
  4. MOXONIDINE [Suspect]
     Route: 048
  5. ACETOLYT [Suspect]
     Indication: ACIDOSIS
     Route: 048
     Dates: end: 20080720
  6. ALLOPURINOL [Suspect]
     Indication: HYPERURICAEMIA
     Route: 048
  7. ASPIRIN [Suspect]
     Indication: PROPHYLAXIS
     Route: 048
     Dates: start: 20000101
  8. DIGITOXIN TAB [Suspect]
     Route: 048
     Dates: start: 20080625, end: 20080720
  9. DIOVAN [Suspect]
     Route: 048
  10. EBRANTIL [Suspect]
     Route: 048
  11. EINSALPHA [Suspect]
     Indication: HYPERPARATHYROIDISM
     Route: 048
     Dates: start: 20080520
  12. FLUVASTATIN [Suspect]
     Indication: HYPERCHOLESTEROLAEMIA
     Route: 048
  13. PANTOZOL [Suspect]
     Route: 048
  14. PLAVIX [Suspect]
     Indication: PROPHYLAXIS
     Route: 048
     Dates: start: 20080401, end: 20080720
  15. XIPAMIDE [Suspect]
     Route: 048

REACTIONS (1)
  - GENERAL PHYSICAL HEALTH DETERIORATION [None]
